FAERS Safety Report 17556203 (Version 1)
Quarter: 2020Q1

REPORT INFORMATION
  Report Type: Spontaneous
  Country: US (occurrence: US)
  Receive Date: 20200318
  Receipt Date: 20200318
  Transmission Date: 20200409
  Serious: No
  Sender: FDA-Public Use
  Company Number: US-THERAPEUTICSMD-2020TMD00737

PATIENT
  Age: 53 Year
  Sex: Female
  Weight: 67.12 kg

DRUGS (6)
  1. IMVEXXY [Suspect]
     Active Substance: ESTRADIOL
     Indication: DYSPAREUNIA
     Dosage: 8 ?G, BEFORE BED
     Route: 067
     Dates: start: 202001, end: 20200128
  2. IMVEXXY [Suspect]
     Active Substance: ESTRADIOL
     Dosage: 4 ?G, BEFORE BED
     Route: 067
     Dates: start: 201910, end: 202001
  3. VESICARE [Concomitant]
     Active Substance: SOLIFENACIN SUCCINATE
  4. IMVEXXY [Suspect]
     Active Substance: ESTRADIOL
     Dosage: 4 ?G, BEFORE BED
     Route: 067
     Dates: start: 20200203
  5. LUNESTA [Concomitant]
     Active Substance: ESZOPICLONE
  6. MULTIVITAMIN [Concomitant]
     Active Substance: VITAMINS

REACTIONS (6)
  - Product dispensing error [Unknown]
  - Vulvovaginal discomfort [Recovered/Resolved]
  - Vaginal haemorrhage [Recovered/Resolved]
  - Vaginal discharge [Recovered/Resolved]
  - Intentional product misuse [Recovered/Resolved]
  - Blood urine present [Unknown]

NARRATIVE: CASE EVENT DATE: 202001
